FAERS Safety Report 4804493-7 (Version None)
Quarter: 2005Q4

REPORT INFORMATION
  Report Type: 
  Country: None (occurrence: None)
  Receive Date: 20051018
  Receipt Date: 20051018
  Transmission Date: 20060501
  Serious: Yes (Hospitalization)
  Sender: FDA-Public Use
  Company Number: None

PATIENT
  Age: 73 Year
  Sex: Male
  Weight: 123 kg

DRUGS (4)
  1. ALLOPURINOL [Suspect]
     Indication: PODAGRA
     Dosage: 300MG QD PO
     Route: 048
     Dates: start: 20050809, end: 20050830
  2. FELODIPINE [Concomitant]
  3. GLYBURIDE [Concomitant]
  4. LISINOPRIL [Concomitant]

REACTIONS (6)
  - EOSINOPHILIA [None]
  - HYPERSENSITIVITY [None]
  - NEPHRITIS ALLERGIC [None]
  - RASH PAPULAR [None]
  - RASH PRURITIC [None]
  - RENAL FAILURE ACUTE [None]
